FAERS Safety Report 25724990 (Version 4)
Quarter: 2025Q4

REPORT INFORMATION
  Report Type: Spontaneous
  Country: JP (occurrence: JP)
  Receive Date: 20250826
  Receipt Date: 20251203
  Transmission Date: 20260117
  Serious: Yes (Hospitalization, Other)
  Sender: GALDERMA
  Company Number: JP-GALDERMA-JP2025015826

PATIENT

DRUGS (3)
  1. NEMOLIZUMAB [Suspect]
     Active Substance: NEMOLIZUMAB
     Indication: Dermatitis atopic
     Dosage: 60 MILLIGRAM
     Route: 058
     Dates: start: 202305, end: 202305
  2. NEMOLIZUMAB [Suspect]
     Active Substance: NEMOLIZUMAB
     Dosage: 60 MILLIGRAM
     Route: 058
  3. NEMOLIZUMAB [Suspect]
     Active Substance: NEMOLIZUMAB
     Dosage: 60 MILLIGRAM EVERY 6 WEEKS
     Route: 058
     Dates: start: 20250804, end: 20250804

REACTIONS (4)
  - Impetigo [Recovered/Resolved]
  - Eczema herpeticum [Recovered/Resolved]
  - Off label use [Recovered/Resolved]
  - Intentional underdose [Recovered/Resolved]

NARRATIVE: CASE EVENT DATE: 20250804
